FAERS Safety Report 16380059 (Version 6)
Quarter: 2019Q4

REPORT INFORMATION
  Report Type: Report from Study
  Country: US (occurrence: US)
  Receive Date: 20190531
  Receipt Date: 20191212
  Transmission Date: 20200122
  Serious: Yes (Hospitalization)
  Sender: FDA-Public Use
  Company Number: PHEH2019US022571

PATIENT
  Age: 46 Year
  Sex: Female

DRUGS (2)
  1. TREPROSTINIL. [Suspect]
     Active Substance: TREPROSTINIL
     Dosage: 88 NG/KG/MIN (CONTINUOUS)
     Route: 042
     Dates: start: 20190703
  2. TREPROSTINIL. [Suspect]
     Active Substance: TREPROSTINIL
     Indication: PULMONARY ARTERIAL HYPERTENSION
     Dosage: 38 NG/KG/MIN, UNK
     Route: 042
     Dates: start: 20190506

REACTIONS (4)
  - Headache [Not Recovered/Not Resolved]
  - Nocturnal dyspnoea [Unknown]
  - Infusion site pain [Not Recovered/Not Resolved]
  - Pulmonary embolism [Unknown]

NARRATIVE: CASE EVENT DATE: 201905
